FAERS Safety Report 5512502-5 (Version None)
Quarter: 2007Q4

REPORT INFORMATION
  Report Type: 
  Country: None (occurrence: None)
  Receive Date: 20071112
  Receipt Date: 20070524
  Transmission Date: 20080405
  Serious: No
  Sender: FDA-Public Use
  Company Number: A0652858A

PATIENT
  Age: 57 Year
  Sex: Female

DRUGS (3)
  1. AVANDAMET [Suspect]
     Dosage: 1TAB PER DAY
     Route: 048
     Dates: end: 20070522
  2. BONIVA [Concomitant]
  3. FLEXERIL [Concomitant]

REACTIONS (5)
  - ASTHENIA [None]
  - DIZZINESS [None]
  - GAIT DISTURBANCE [None]
  - NAUSEA [None]
  - PAIN IN EXTREMITY [None]
